FAERS Safety Report 23898297 (Version 7)
Quarter: 2024Q3

REPORT INFORMATION
  Report Type: Report from Study
  Country: US (occurrence: US)
  Receive Date: 20240524
  Receipt Date: 20240826
  Transmission Date: 20241017
  Serious: Yes (Other)
  Sender: MALLINCKRODT
  Company Number: US-MALLINCKRODT-MNK202403269

PATIENT
  Age: 63 Year
  Sex: Female

DRUGS (5)
  1. CORTICOTROPIN [Suspect]
     Active Substance: CORTICOTROPIN
     Indication: Systemic lupus erythematosus
     Route: 030
     Dates: start: 20240502, end: 2024
  2. CORTICOTROPIN [Suspect]
     Active Substance: CORTICOTROPIN
     Dates: start: 2024
  3. PREDNISONE [Concomitant]
     Active Substance: PREDNISONE
  4. OLMESARTAN [Concomitant]
     Active Substance: OLMESARTAN
     Dosage: UNKNOWN
  5. METOPROLOL [Concomitant]
     Active Substance: METOPROLOL
     Dosage: UNKNOWN

REACTIONS (11)
  - Heart rate increased [Not Recovered/Not Resolved]
  - Systemic lupus erythematosus [Unknown]
  - Blood pressure increased [Recovering/Resolving]
  - Confusional state [Unknown]
  - Pain in extremity [Not Recovered/Not Resolved]
  - Back pain [Not Recovered/Not Resolved]
  - Fatigue [Not Recovered/Not Resolved]
  - Frustration tolerance decreased [Not Recovered/Not Resolved]
  - Adrenal disorder [Unknown]
  - Therapeutic response shortened [Unknown]
  - Overdose [Unknown]

NARRATIVE: CASE EVENT DATE: 20240101
